FAERS Safety Report 13343104 (Version 1)
Quarter: 2017Q1

REPORT INFORMATION
  Report Type: Report from Study
  Country: CA (occurrence: CA)
  Receive Date: 20170316
  Receipt Date: 20170316
  Transmission Date: 20170428
  Serious: Yes (Other)
  Sender: FDA-Public Use
  Company Number: CA-JNJFOC-20170311232

PATIENT
  Age: 19 Year
  Sex: Male
  Weight: 66.7 kg

DRUGS (1)
  1. REMICADE [Suspect]
     Active Substance: INFLIXIMAB
     Indication: CROHN^S DISEASE
     Route: 042
     Dates: start: 20080129

REACTIONS (8)
  - Infusion related reaction [Recovering/Resolving]
  - Heart rate decreased [Recovering/Resolving]
  - Off label use [Unknown]
  - Product use issue [Unknown]
  - Blood pressure decreased [Recovered/Resolved]
  - Syncope [Recovering/Resolving]
  - Abdominal pain [Recovering/Resolving]
  - Stress [Recovering/Resolving]

NARRATIVE: CASE EVENT DATE: 20080129
